FAERS Safety Report 9635857 (Version 1)
Quarter: 2013Q4

REPORT INFORMATION
  Report Type: Spontaneous
  Country: US (occurrence: US)
  Receive Date: 20131021
  Receipt Date: 20131021
  Transmission Date: 20140711
  Serious: Yes (Other)
  Sender: FDA-Public Use
  Company Number: US-PFIZER INC-2013300733

PATIENT
  Sex: Female

DRUGS (1)
  1. PRISTIQ [Suspect]
     Dosage: 50 MG, UNK

REACTIONS (6)
  - Hypersensitivity [Unknown]
  - Skin swelling [Unknown]
  - Pharyngeal oedema [Unknown]
  - Joint swelling [Unknown]
  - Swelling face [Unknown]
  - Lip swelling [Unknown]
